FAERS Safety Report 5302998-6 (Version None)
Quarter: 2007Q2

REPORT INFORMATION
  Report Type: 
  Country: None (occurrence: None)
  Receive Date: 20070420
  Receipt Date: 20070411
  Transmission Date: 20071010
  Serious: Yes (Hospitalization, Other)
  Sender: FDA-Public Use
  Company Number: US-BAYER-200710333BWH

PATIENT
  Age: 43 Year
  Sex: Female
  Weight: 77 kg

DRUGS (3)
  1. AVELOX [Suspect]
     Indication: SINUSITIS
     Dosage: TOTAL DAILY DOSE: 400 MG  UNIT DOSE: 400 MG
     Route: 048
     Dates: start: 20061208, end: 20061214
  2. PROTONIX [Concomitant]
     Route: 048
  3. ESTRADIOL [Concomitant]
     Route: 062

REACTIONS (5)
  - ADVERSE DRUG REACTION [None]
  - ATRIOVENTRICULAR BLOCK COMPLETE [None]
  - CHEST DISCOMFORT [None]
  - DYSPNOEA [None]
  - LOSS OF CONSCIOUSNESS [None]
